FAERS Safety Report 10816643 (Version 2)
Quarter: 2016Q1

REPORT INFORMATION
  Report Type: Report from Study
  Country: US (occurrence: US)
  Receive Date: 20150218
  Receipt Date: 20160125
  Transmission Date: 20160525
  Serious: No
  Sender: FDA-Public Use
  Company Number: US-ABBVIE-14K-163-1289673-00

PATIENT
  Age: 29 Year
  Sex: Male

DRUGS (1)
  1. HUMIRA [Suspect]
     Active Substance: ADALIMUMAB
     Indication: PSORIASIS
     Route: 065
     Dates: start: 20140601, end: 20140801

REACTIONS (9)
  - Fatigue [Recovered/Resolved]
  - Weight decreased [Recovered/Resolved]
  - Joint stiffness [Unknown]
  - Psoriasis [Not Recovered/Not Resolved]
  - Decreased appetite [Recovered/Resolved]
  - Injection site reaction [Unknown]
  - Hypersomnia [Unknown]
  - Rash macular [Unknown]
  - Hypersensitivity [Unknown]

NARRATIVE: CASE EVENT DATE: 2014
